FAERS Safety Report 10107180 (Version 2)
Quarter: 2014Q3

REPORT INFORMATION
  Report Type: Other
  Country: US (occurrence: US)
  Receive Date: 20140424
  Receipt Date: 20140725
  Transmission Date: 20150326
  Serious: Yes (Hospitalization, Other)
  Sender: FDA-Public Use
  Company Number: US-GSKPPD-2014GSK001593

PATIENT
  Age: 45 Year
  Sex: Female
  Weight: 105.33 kg

DRUGS (6)
  1. TOPROL XL [Concomitant]
     Active Substance: METOPROLOL SUCCINATE
  2. CATAPRES [Concomitant]
     Active Substance: CLONIDINE HYDROCHLORIDE
     Route: 062
  3. ASPIRIN. [Concomitant]
     Active Substance: ASPIRIN
  4. AVANDIA [Suspect]
     Active Substance: ROSIGLITAZONE MALEATE
     Indication: DIABETES MELLITUS
     Route: 048
     Dates: start: 2006
  5. AVANDAMET [Suspect]
     Active Substance: METFORMIN HYDROCHLORIDE\ROSIGLITAZONE MALEATE
     Indication: DIABETES MELLITUS
     Dosage: 4/500 MG
     Dates: start: 2004, end: 2009
  6. MICARDIS HCT [Concomitant]
     Active Substance: HYDROCHLOROTHIAZIDE\TELMISARTAN
     Dosage: 80/12.5 MG

REACTIONS (2)
  - Cerebrovascular accident [None]
  - Hypertension [Recovered/Resolved]

NARRATIVE: CASE EVENT DATE: 20040122
